FAERS Safety Report 6389321-3 (Version None)
Quarter: 2009Q4

REPORT INFORMATION
  Report Type: 
  Country: None (occurrence: None)
  Receive Date: 20091006
  Receipt Date: 20091001
  Transmission Date: 20100525
  Serious: Yes (Life-Threatening, Hospitalization, Other)
  Sender: FDA-Public Use
  Company Number: PHBS2007JP19556

PATIENT
  Sex: Female
  Weight: 42 kg

DRUGS (7)
  1. RITALIN [Suspect]
     Indication: DEPRESSION
     Dosage: 100 MG/DAY
     Route: 048
     Dates: start: 19970101, end: 20071020
  2. RITALIN [Suspect]
     Dosage: 400 MG/DAY
  3. MAPROTILINE [Concomitant]
     Indication: DEPRESSION
  4. DEPAS [Concomitant]
     Indication: DEPRESSION
     Dosage: 3 DF/DAY
     Route: 048
     Dates: end: 20071021
  5. LASIX [Concomitant]
     Indication: OEDEMA
     Dosage: 1 DF/DAY
     Route: 048
     Dates: end: 20071021
  6. HALCION [Concomitant]
     Indication: INSOMNIA
     Dosage: 1 DF/DAY
     Route: 048
     Dates: end: 20071020
  7. MYSLEE [Concomitant]
     Indication: INSOMNIA
     Dosage: 2 DF/DAY
     Route: 048
     Dates: end: 20071020

REACTIONS (15)
  - AGGRESSION [None]
  - ANXIETY [None]
  - AUTISM [None]
  - DEPRESSED MOOD [None]
  - DRUG ABUSE [None]
  - DRUG DEPENDENCE [None]
  - FACIAL SPASM [None]
  - FEELING ABNORMAL [None]
  - HALLUCINATION, AUDITORY [None]
  - INSOMNIA [None]
  - LISTLESS [None]
  - ORTHOPEDIC PROCEDURE [None]
  - PERSECUTORY DELUSION [None]
  - SUICIDE ATTEMPT [None]
  - WITHDRAWAL SYNDROME [None]
